FAERS Safety Report 14163260 (Version 1)
Quarter: 2017Q4

REPORT INFORMATION
  Report Type: Spontaneous
  Country: US (occurrence: US)
  Receive Date: 20171106
  Receipt Date: 20171106
  Transmission Date: 20180321
  Serious: Yes (Death, Other)
  Sender: FDA-Public Use
  Company Number: US-PFIZER INC-K200900284

PATIENT
  Sex: Female

DRUGS (1)
  1. EPIPEN [Suspect]
     Active Substance: EPINEPHRINE
     Indication: FOOD ALLERGY
     Dosage: 0.3 MG, SINGLE
     Dates: start: 20070131, end: 20070131

REACTIONS (7)
  - Needle issue [Fatal]
  - Product quality issue [Fatal]
  - Device failure [Fatal]
  - Drug dose omission [Unknown]
  - Device use issue [Fatal]
  - Malaise [Fatal]
  - Drug ineffective [Fatal]

NARRATIVE: CASE EVENT DATE: 20070131
